FAERS Safety Report 23110469 (Version 1)
Quarter: 2023Q4

REPORT INFORMATION
  Report Type: Spontaneous
  Country: US (occurrence: US)
  Receive Date: 20231026
  Receipt Date: 20231026
  Transmission Date: 20240110
  Serious: No
  Sender: FDA-Public Use
  Company Number: US-Dermavant-000837

PATIENT
  Age: 65 Year
  Sex: Male

DRUGS (2)
  1. TAPINAROF [Suspect]
     Active Substance: TAPINAROF
     Indication: Psoriasis
     Dosage: AREA OF APPLICATION: SCROTUM
     Route: 061
     Dates: start: 20230613, end: 20230912
  2. MOMETASONE [Concomitant]
     Active Substance: MOMETASONE

REACTIONS (3)
  - Milia [Not Recovered/Not Resolved]
  - Dermal cyst [Not Recovered/Not Resolved]
  - Wound secretion [Recovering/Resolving]
